FAERS Safety Report 5447742-7 (Version None)
Quarter: 2007Q3

REPORT INFORMATION
  Report Type: 
  Country: None (occurrence: None)
  Receive Date: 20070910
  Receipt Date: 20070829
  Transmission Date: 20080115
  Serious: Yes (Hospitalization, Other)
  Sender: FDA-Public Use
  Company Number: US-ELI_LILLY_AND_COMPANY-US200708003763

PATIENT
  Age: 45 Year
  Sex: Female
  Weight: 59.863 kg

DRUGS (13)
  1. GEMZAR [Suspect]
     Indication: PANCREATIC CARCINOMA
     Dosage: 1770 MG, UNK
     Route: 042
     Dates: start: 20070531, end: 20070628
  2. GEMZAR [Suspect]
     Dosage: 1000 MG, UNK
     Dates: start: 20070718, end: 20070808
  3. MSIR [Concomitant]
  4. ALBUTEROL [Concomitant]
  5. MIRALAX [Concomitant]
  6. REGLAN [Concomitant]
  7. COMPAZINE /00013304/ [Concomitant]
  8. ALOXI [Concomitant]
     Indication: SUPPLEMENTATION THERAPY
     Dosage: 250 UG, UNK
  9. DECADRON [Concomitant]
     Indication: SUPPLEMENTATION THERAPY
     Dosage: 20 MG, UNK
     Route: 042
  10. TARCEVA [Concomitant]
     Indication: PANCREATIC CARCINOMA
     Dosage: 100 MG, UNK
     Dates: start: 20070524, end: 20070712
  11. TAXOTERE [Concomitant]
     Indication: PANCREATIC CARCINOMA
     Dosage: 100 MG, UNK
     Route: 042
     Dates: start: 20070718, end: 20070718
  12. ARANESP [Concomitant]
     Dosage: 200 UG, UNK
     Route: 058
  13. HEPARIN SODIUM [Concomitant]
     Dosage: 1000 ML, UNK
     Route: 042

REACTIONS (4)
  - BLOOD ALBUMIN DECREASED [None]
  - CARDIOMYOPATHY [None]
  - INTESTINAL OBSTRUCTION [None]
  - MALIGNANT NEOPLASM PROGRESSION [None]
